FAERS Safety Report 16750795 (Version 1)
Quarter: 2019Q3

REPORT INFORMATION
  Report Type: Spontaneous
  Country: US (occurrence: US)
  Receive Date: 20190710
  Receipt Date: 20190710
  Transmission Date: 20191005
  Serious: No
  Sender: FDA-Public Use
  Company Number: None

PATIENT
  Sex: Female

DRUGS (1)
  1. BEXAROTENE. [Suspect]
     Active Substance: BEXAROTENE
     Indication: NEOPLASM MALIGNANT
     Dosage: ?          OTHER FREQUENCY:AM/PM;?
     Route: 048
     Dates: start: 20190510

REACTIONS (1)
  - Menstrual disorder [None]
